FAERS Safety Report 6656432-4 (Version None)
Quarter: 2010Q1

REPORT INFORMATION
  Report Type: 
  Country: None (occurrence: None)
  Receive Date: 20100329
  Receipt Date: 20100324
  Transmission Date: 20100710
  Serious: Yes (Death, Hospitalization)
  Sender: FDA-Public Use
  Company Number: AU-JNJFOC-20040305038

PATIENT
  Sex: Male
  Weight: 44 kg

DRUGS (2)
  1. RISPERDAL [Suspect]
     Indication: NEUROSIS
     Route: 048
     Dates: start: 20031218, end: 20040318
  2. RISPERDAL [Suspect]
     Indication: CONDUCT DISORDER
     Route: 048
     Dates: start: 20031218, end: 20040318

REACTIONS (2)
  - CIRCULATORY COLLAPSE [None]
  - SUDDEN DEATH [None]
